FAERS Safety Report 17030858 (Version 1)
Quarter: 2019Q4

REPORT INFORMATION
  Report Type: Report from Study
  Country: GB (occurrence: GB)
  Receive Date: 20191114
  Receipt Date: 20191114
  Transmission Date: 20200122
  Serious: Yes (Other)
  Sender: FDA-Public Use
  Company Number: PHHY2017GB099948

PATIENT
  Age: 34 Year
  Sex: Female

DRUGS (1)
  1. GILENYA [Suspect]
     Active Substance: FINGOLIMOD HYDROCHLORIDE
     Indication: MULTIPLE SCLEROSIS
     Dosage: UNK UNK, QD
     Route: 048
     Dates: start: 20140305, end: 2016

REACTIONS (7)
  - Lymphocyte count decreased [Recovered/Resolved]
  - Urinary tract infection [Unknown]
  - Back pain [Unknown]
  - Abdominal pain [Unknown]
  - Pain in extremity [Unknown]
  - Musculoskeletal discomfort [Unknown]
  - Hepatic steatosis [Unknown]

NARRATIVE: CASE EVENT DATE: 20170406
